FAERS Safety Report 18107726 (Version 2)
Quarter: 2021Q1

REPORT INFORMATION
  Report Type: Report from Study
  Country: US (occurrence: US)
  Receive Date: 20200803
  Receipt Date: 20210318
  Transmission Date: 20210419
  Serious: Yes (Other)
  Sender: FDA-Public Use
  Company Number: NVSC2020US215980

PATIENT
  Age: 7 Year
  Sex: Female
  Weight: 30 kg

DRUGS (3)
  1. KYMRIAH [Suspect]
     Active Substance: TISAGENLECLEUCEL
     Indication: LYMPHOCYTIC LEUKAEMIA
     Dosage: UNK UNK, ONCE/SINGLE
     Route: 041
     Dates: start: 20200415
  2. CYCLOPHOSPHAMIDE. [Concomitant]
     Active Substance: CYCLOPHOSPHAMIDE
     Indication: CHEMOTHERAPY
     Dosage: UNK
     Route: 065
  3. FLUDARABINE [Concomitant]
     Active Substance: FLUDARABINE PHOSPHATE
     Indication: CHEMOTHERAPY
     Dosage: UNK
     Route: 065

REACTIONS (9)
  - Hypotension [Recovered/Resolved]
  - C-reactive protein increased [Recovered/Resolved]
  - Cytopenia [Unknown]
  - Coagulopathy [Recovered/Resolved]
  - Pyrexia [Recovered/Resolved]
  - Haematocrit decreased [Unknown]
  - Cytokine release syndrome [Recovered/Resolved]
  - Neutropenia [Unknown]
  - Acute lymphocytic leukaemia recurrent [Unknown]

NARRATIVE: CASE EVENT DATE: 20200421
